FAERS Safety Report 18308784 (Version 4)
Quarter: 2020Q4

REPORT INFORMATION
  Report Type: Spontaneous
  Country: US (occurrence: US)
  Receive Date: 20200924
  Receipt Date: 20201019
  Transmission Date: 20210113
  Serious: No
  Sender: FDA-Public Use
  Company Number: US-PFIZER INC-2019553370

PATIENT
  Age: 89 Year
  Sex: Male

DRUGS (1)
  1. LYRICA [Suspect]
     Active Substance: PREGABALIN
     Indication: PAIN
     Dosage: 200 MG, AS NEEDED (1 CAPSULE BY MOUTH TWICE DAILY IN THE NIGHT (PM))
     Route: 048

REACTIONS (2)
  - Pain in extremity [Unknown]
  - Paraesthesia [Unknown]
